FAERS Safety Report 5520194-4 (Version None)
Quarter: 2007Q4

REPORT INFORMATION
  Report Type: 
  Country: None (occurrence: None)
  Receive Date: 20071116
  Receipt Date: 20071112
  Transmission Date: 20080405
  Serious: Yes (Other)
  Sender: FDA-Public Use
  Company Number: US-GENENTECH-249864

PATIENT
  Sex: Female
  Weight: 73 kg

DRUGS (2)
  1. AVASTIN [Suspect]
     Indication: BREAST CANCER METASTATIC
     Dosage: 425 MG, 3/MONTH
     Route: 042
     Dates: start: 20070622
  2. ABRAXANE [Concomitant]
     Indication: BREAST CANCER
     Dosage: 143 MG, 3/MONTH
     Route: 042
     Dates: start: 20070504

REACTIONS (1)
  - ONYCHOMADESIS [None]
